FAERS Safety Report 7531562-3 (Version None)
Quarter: 2011Q2

REPORT INFORMATION
  Report Type: 
  Country: None (occurrence: None)
  Receive Date: 20110608
  Receipt Date: 20110530
  Transmission Date: 20111010
  Serious: Yes (Other)
  Sender: FDA-Public Use
  Company Number: US-ASTRAZENECA-2011SE33251

PATIENT
  Age: 15 Year
  Sex: Male

DRUGS (3)
  1. QUETIAPINE [Suspect]
     Indication: DEPRESSION
     Route: 048
  2. QUETIAPINE [Suspect]
     Indication: ATTENTION DEFICIT/HYPERACTIVITY DISORDER
     Route: 048
  3. QUETIAPINE [Suspect]
     Indication: AUTISM
     Route: 048

REACTIONS (4)
  - DYSLIPIDAEMIA [None]
  - HYPERGLYCAEMIA [None]
  - ALANINE AMINOTRANSFERASE INCREASED [None]
  - ASPARTATE AMINOTRANSFERASE INCREASED [None]
